FAERS Safety Report 9912131 (Version 2)
Quarter: 2014Q1

REPORT INFORMATION
  Report Type: Report from Study
  Country: CA (occurrence: CA)
  Receive Date: 20140219
  Receipt Date: 20140219
  Transmission Date: 20141002
  Serious: Yes (Hospitalization, Other)
  Sender: FDA-Public Use
  Company Number: CA-BRISTOL-MYERS SQUIBB COMPANY-15583768

PATIENT
  Age: 63 Year
  Sex: Female
  Weight: 56.23 kg

DRUGS (19)
  1. ORENCIA [Suspect]
     Indication: RHEUMATOID ARTHRITIS
     Dosage: 14JL11,19MR12,1O12,11O12,06D12,INF:31,LOTNO:1G64569,EXP:MR14,2C80093;SE2014,2H62038;APR15,JUL15;
     Route: 042
     Dates: start: 20091022
  2. METHOTREXATE [Suspect]
  3. CELEBREX [Concomitant]
  4. CALCIUM [Concomitant]
  5. VITAMIN E [Concomitant]
  6. APO-FOLIC [Concomitant]
     Dosage: JAMP FOLIC ACID 5MG 2/WK
  7. FOSAMAX [Concomitant]
  8. DIOVAN [Concomitant]
  9. NEXIUM [Concomitant]
  10. PANTOPRAZOLE [Concomitant]
  11. ACETYLSALICYLIC ACID [Concomitant]
     Dosage: PRO-AAS
  12. BISOPROLOL [Concomitant]
     Dosage: 1DF: 1/2TAB, STR:5MG?PRO-BISOPROLOL
  13. ROSUVASTATIN [Concomitant]
  14. VALSARTAN [Concomitant]
  15. ATIVAN [Concomitant]
  16. CITALOPRAM [Concomitant]
     Dosage: 1,1/2TTAB
  17. VITAMIN D [Concomitant]
     Dosage: D TABS
  18. RISEDRONATE SODIUM [Concomitant]
     Dosage: NOVORISDRONATE
  19. CHLOROQUINE [Concomitant]
     Dosage: TEVA CHLOROQUINE

REACTIONS (17)
  - Myocardial infarction [Recovered/Resolved]
  - Anaemia [Recovered/Resolved]
  - Pneumonia [Recovered/Resolved]
  - Cardiac disorder [Unknown]
  - Pyelonephritis [Unknown]
  - Oropharyngeal pain [Recovered/Resolved]
  - Cough [Unknown]
  - Productive cough [Unknown]
  - Trigeminal neuralgia [Unknown]
  - Local swelling [Not Recovered/Not Resolved]
  - Erythema [Not Recovered/Not Resolved]
  - Skin disorder [Not Recovered/Not Resolved]
  - Foot deformity [Not Recovered/Not Resolved]
  - Rheumatoid arthritis [Not Recovered/Not Resolved]
  - Influenza [Not Recovered/Not Resolved]
  - Oral pain [Recovered/Resolved]
  - Rhinorrhoea [Not Recovered/Not Resolved]
